FAERS Safety Report 9331740 (Version 1)
Quarter: 2013Q2

REPORT INFORMATION
  Report Type: Spontaneous
  Country: US (occurrence: US)
  Receive Date: 20130605
  Receipt Date: 20130605
  Transmission Date: 20140414
  Serious: Yes (Life-Threatening, Other)
  Sender: FDA-Public Use
  Company Number: US-ELI_LILLY_AND_COMPANY-US201305009003

PATIENT
  Age: 71 Year
  Sex: Female

DRUGS (2)
  1. DOBUTAMINE [Suspect]
     Indication: VASOSPASM
  2. NOREPINEPHRINE [Concomitant]
     Indication: VASOSPASM

REACTIONS (2)
  - Hypoxia [Recovered/Resolved]
  - Stress cardiomyopathy [Recovered/Resolved]
